FAERS Safety Report 7702961-1 (Version None)
Quarter: 2011Q3

REPORT INFORMATION
  Report Type: 
  Country: None (occurrence: None)
  Receive Date: 20110823
  Receipt Date: 20110811
  Transmission Date: 20111222
  Serious: Yes (Hospitalization)
  Sender: FDA-Public Use
  Company Number: PHEH2011US01624

PATIENT
  Sex: Female

DRUGS (1)
  1. RECLAST [Suspect]
     Dosage: 5 MG / 100 ML  YEARLY
     Route: 042
     Dates: start: 20100805

REACTIONS (2)
  - FALL [None]
  - HIP FRACTURE [None]
